FAERS Safety Report 5117093-9 (Version None)
Quarter: 2006Q3

REPORT INFORMATION
  Report Type: 
  Country: None (occurrence: None)
  Receive Date: 20060925
  Receipt Date: 20060911
  Transmission Date: 20061208
  Serious: Yes (Other)
  Sender: FDA-Public Use
  Company Number: 2006110705

PATIENT
  Sex: Female

DRUGS (2)
  1. HALCION [Suspect]
     Dosage: ORAL
     Route: 048
  2. ZOLPIDEM TARTRATE [Suspect]
     Dosage: ORAL
     Route: 048

REACTIONS (1)
  - AMNESIA [None]
